FAERS Safety Report 15461278 (Version 3)
Quarter: 2018Q4

REPORT INFORMATION
  Report Type: Report from Study
  Country: US (occurrence: US)
  Receive Date: 20181003
  Receipt Date: 20181120
  Transmission Date: 20190204
  Serious: Yes (Other)
  Sender: FDA-Public Use
  Company Number: PHHO2018US010628

PATIENT
  Age: 8 Year
  Sex: Male

DRUGS (3)
  1. GSK2118436 [Suspect]
     Active Substance: DABRAFENIB
     Indication: NEOPLASM
     Dosage: UNK
     Route: 048
     Dates: start: 20141125
  2. GSK2118436 [Suspect]
     Active Substance: DABRAFENIB
     Dosage: UNK
     Route: 048
     Dates: end: 20180822
  3. GSK2118436 [Suspect]
     Active Substance: DABRAFENIB
     Dosage: 162 MG, BID
     Route: 048
     Dates: start: 20180801, end: 20180801

REACTIONS (1)
  - Accidental overdose [Recovered/Resolved]

NARRATIVE: CASE EVENT DATE: 20180801
